FAERS Safety Report 5053665-8 (Version None)
Quarter: 2006Q3

REPORT INFORMATION
  Report Type: 
  Country: None (occurrence: None)
  Receive Date: 20060718
  Receipt Date: 20060608
  Transmission Date: 20061208
  Serious: Yes (Other)
  Sender: FDA-Public Use
  Company Number: PHEH2006US07518

PATIENT
  Age: 50 Year
  Sex: Male

DRUGS (3)
  1. RESTASIS [Concomitant]
  2. GENTEAL MODERATE LUBRICANT EYE DROPS (NVO) [Suspect]
     Indication: DRY EYE
     Dates: end: 20060601
  3. GENTEAL GEL (NVO) [Suspect]
     Indication: DRY EYE
     Dates: end: 20060601

REACTIONS (4)
  - BLINDNESS [None]
  - EYE IRRITATION [None]
  - EYELID DISORDER [None]
  - EYELID PTOSIS [None]
